FAERS Safety Report 6142008-4 (Version None)
Quarter: 2009Q1

REPORT INFORMATION
  Report Type: 
  Country: None (occurrence: None)
  Receive Date: 20090331
  Receipt Date: 20090331
  Transmission Date: 20090719
  Serious: Yes (Other)
  Sender: FDA-Public Use
  Company Number: None

PATIENT
  Age: 58 Year
  Sex: Male
  Weight: 90.7194 kg

DRUGS (1)
  1. NAPROXEN [Suspect]
     Indication: MUSCULOSKELETAL PAIN
     Dosage: 500 MG TWICE DAILY PO
     Route: 048
     Dates: start: 20090221, end: 20090303

REACTIONS (1)
  - TINNITUS [None]
